FAERS Safety Report 26081226 (Version 1)
Quarter: 2025Q4

REPORT INFORMATION
  Report Type: Spontaneous
  Country: TH (occurrence: TH)
  Receive Date: 20251124
  Receipt Date: 20251124
  Transmission Date: 20260117
  Serious: Yes (Other)
  Sender: BRISTOL-MYERS SQUIBB COMPANY
  Company Number: TH-BRISTOL-MYERS SQUIBB COMPANY-2025-158213

PATIENT
  Age: 88 Year

DRUGS (1)
  1. LUSPATERCEPT-AAMT [Suspect]
     Active Substance: LUSPATERCEPT-AAMT
     Indication: Thalassaemia beta
     Dosage: FIRST CYCLE

REACTIONS (2)
  - Atrial fibrillation [Unknown]
  - Bone pain [Unknown]
